FAERS Safety Report 4324697-X (Version None)
Quarter: 2004Q1

REPORT INFORMATION
  Report Type: 
  Country: None (occurrence: None)
  Receive Date: 20040323
  Receipt Date: 20021204
  Transmission Date: 20041129
  Serious: Yes (Death, Hospitalization, Disabling)
  Sender: FDA-Public Use
  Company Number: 2002IC000337

PATIENT
  Age: 59 Year
  Sex: Female

DRUGS (8)
  1. FLUOROURACIL [Suspect]
     Indication: COLON CANCER
     Dosage: SEE IMAGE
     Route: 042
     Dates: start: 20011203, end: 20020107
  2. FLUOROURACIL [Suspect]
     Indication: COLON CANCER
     Dosage: SEE IMAGE
     Route: 042
     Dates: start: 20020114, end: 20020114
  3. FLUOROURACIL [Suspect]
     Indication: COLON CANCER
     Dosage: SEE IMAGE
     Route: 042
     Dates: start: 20020221, end: 20020314
  4. FLUOROURACIL [Suspect]
     Indication: COLON CANCER
     Dosage: SEE IMAGE
     Route: 042
     Dates: start: 20020329, end: 20020405
  5. ISORVIN (LEVOFOLINATE CALCIUM) (GENERIC UNKNOWN) [Suspect]
     Indication: COLON CANCER
     Dosage: SEE IMAGE
     Route: 042
     Dates: start: 20011203, end: 20020114
  6. ISORVIN (LEVOFOLINATE CALCIUM) (GENERIC UNKNOWN) [Suspect]
     Indication: COLON CANCER
     Dosage: SEE IMAGE
     Route: 042
     Dates: start: 20020221, end: 20020314
  7. ISORVIN (LEVOFOLINATE CALCIUM) (GENERIC UNKNOWN) [Suspect]
     Indication: COLON CANCER
     Dosage: SEE IMAGE
     Route: 042
     Dates: start: 20020329, end: 20020405
  8. GASTER [Concomitant]

REACTIONS (16)
  - ARTERIOSCLEROSIS [None]
  - BONE MARROW DEPRESSION [None]
  - CARDIAC ARREST [None]
  - CEREBRAL INFARCTION [None]
  - DEPRESSED LEVEL OF CONSCIOUSNESS [None]
  - DIARRHOEA [None]
  - HEMIPLEGIA [None]
  - HERPES ZOSTER [None]
  - HYPOALBUMINAEMIA [None]
  - HYPOKALAEMIA [None]
  - LIVER DISORDER [None]
  - METASTASES TO LIVER [None]
  - OEDEMA [None]
  - PYREXIA [None]
  - RESPIRATORY FAILURE [None]
  - TUMOUR EMBOLISM [None]
